FAERS Safety Report 4498745-0 (Version None)
Quarter: 2004Q3

REPORT INFORMATION
  Report Type: 
  Country: None (occurrence: None)
  Receive Date: 20040927
  Receipt Date: 20040818
  Transmission Date: 20050211
  Serious: No
  Sender: FDA-Public Use
  Company Number: USA040670460

PATIENT
  Age: 30 Year
  Sex: Male
  Weight: 86 kg

DRUGS (1)
  1. STRATTERA [Suspect]
     Indication: ATTENTION DEFICIT/HYPERACTIVITY DISORDER
     Dosage: 40 MG DAY
     Dates: start: 20040601

REACTIONS (3)
  - CHILLS [None]
  - ERECTILE DYSFUNCTION [None]
  - MUSCLE CRAMP [None]
